FAERS Safety Report 19399461 (Version 1)
Quarter: 2021Q2

REPORT INFORMATION
  Report Type: Spontaneous
  Country: JP (occurrence: JP)
  Receive Date: 20210610
  Receipt Date: 20210610
  Transmission Date: 20210717
  Serious: Yes (Other)
  Sender: FDA-Public Use
  Company Number: JP-ASTRAZENECA-2020SE73747

PATIENT
  Age: 78 Year
  Sex: Female
  Weight: 36 kg

DRUGS (17)
  1. TAGRISSO [Suspect]
     Active Substance: OSIMERTINIB
     Indication: NON-SMALL CELL LUNG CANCER
     Route: 048
     Dates: start: 20200414
  2. ITRACONAZOLE. [Concomitant]
     Active Substance: ITRACONAZOLE
     Indication: CRYPTOCOCCOSIS
     Route: 048
     Dates: start: 20150812
  3. FOLIAMIN [Concomitant]
     Active Substance: FOLIC ACID
     Dosage: 1.0DF UNKNOWN
     Route: 048
  4. ANTIBIOTICS?RESISTANT LACTIC ACID BACTERIAE [Concomitant]
     Active Substance: UNSPECIFIED INGREDIENT
     Dosage: 3.0G UNKNOWN
     Route: 065
  5. KETOPROFEN. [Concomitant]
     Active Substance: KETOPROFEN
     Dosage: (7 TAPES/PACK) 10 PACKS
  6. REBAMIPIDE [Concomitant]
     Active Substance: REBAMIPIDE
     Dosage: 300.0MG UNKNOWN
     Route: 048
  7. FUROSEMIDE. [Concomitant]
     Active Substance: FUROSEMIDE
     Dosage: 5.0MG UNKNOWN
     Route: 048
  8. IRESSA [Suspect]
     Active Substance: GEFITINIB
     Indication: NON-SMALL CELL LUNG CANCER
     Route: 048
     Dates: start: 20150820, end: 20180119
  9. NEXIUM [Concomitant]
     Active Substance: ESOMEPRAZOLE MAGNESIUM
     Dosage: 20.0MG UNKNOWN
     Route: 048
  10. INDOMETACIN [Concomitant]
     Active Substance: INDOMETHACIN
     Dosage: 50.0G UNKNOWN
  11. MAGMITT [Concomitant]
     Active Substance: MAGNESIUM OXIDE
     Dosage: 990.0MG UNKNOWN
     Route: 048
  12. FEXOFENADINE HYDROCHLORIDE OD [Concomitant]
     Active Substance: FEXOFENADINE HYDROCHLORIDE
     Dosage: 120.0MG UNKNOWN
     Route: 048
  13. MEMARY OD [Concomitant]
     Active Substance: MEMANTINE HYDROCHLORIDE
     Dosage: 5.0MG UNKNOWN
     Route: 048
  14. TAGRISSO [Suspect]
     Active Substance: OSIMERTINIB
     Indication: NON-SMALL CELL LUNG CANCER
     Route: 048
     Dates: start: 20180124, end: 20200413
  15. PREDONINE [Concomitant]
     Active Substance: PREDNISOLONE
     Indication: RHEUMATOID ARTHRITIS
     Route: 048
  16. ROZEREM [Concomitant]
     Active Substance: RAMELTEON
     Dosage: 8.0MG UNKNOWN
     Route: 048
  17. LOPERAMIDE [Concomitant]
     Active Substance: LOPERAMIDE
     Dosage: 1.0DF UNKNOWN
     Route: 048

REACTIONS (2)
  - Electrocardiogram QT prolonged [Unknown]
  - Diarrhoea [Recovering/Resolving]

NARRATIVE: CASE EVENT DATE: 202004
